FAERS Safety Report 6592559-3 (Version None)
Quarter: 2010Q1

REPORT INFORMATION
  Report Type: 
  Country: None (occurrence: None)
  Receive Date: 20100221
  Receipt Date: 20091023
  Transmission Date: 20100710
  Serious: No
  Sender: FDA-Public Use
  Company Number: US-ALLERGAN-0914815US

PATIENT
  Sex: Female

DRUGS (2)
  1. BOTOX [Suspect]
     Indication: MUSCLE SPASMS
     Dosage: UNK
     Route: 030
     Dates: start: 20090917, end: 20090917
  2. BOTOX [Suspect]
     Indication: HEADACHE

REACTIONS (2)
  - DIZZINESS [None]
  - INJECTION SITE REACTION [None]
